FAERS Safety Report 6520321-6 (Version None)
Quarter: 2009Q4

REPORT INFORMATION
  Report Type: 
  Country: None (occurrence: None)
  Receive Date: 20091229
  Receipt Date: 20091222
  Transmission Date: 20100525
  Serious: Yes (Hospitalization, Disabling)
  Sender: FDA-Public Use
  Company Number: GB-AMGEN-UK350182

PATIENT
  Age: 82 Year
  Sex: Male

DRUGS (9)
  1. PANITUMUMAB [Suspect]
     Indication: COLORECTAL CANCER
     Route: 042
     Dates: start: 20090514
  2. OXALIPLATIN [Concomitant]
     Route: 065
     Dates: start: 20090514
  3. FLUOROURACIL [Concomitant]
     Route: 065
     Dates: start: 20090514
  4. FOLINIC ACID [Concomitant]
     Route: 065
     Dates: start: 20090514
  5. CODEINE [Concomitant]
     Route: 048
     Dates: start: 20090525
  6. MAXOLON [Concomitant]
     Route: 048
     Dates: start: 20090524, end: 20090530
  7. CLEXANE [Concomitant]
  8. PARACETAMOL [Concomitant]
     Route: 042
     Dates: start: 20090521
  9. METRONIDAZOLE [Concomitant]
     Route: 042
     Dates: start: 20090521

REACTIONS (2)
  - INTESTINAL PERFORATION [None]
  - NEUTROPENIA [None]
